FAERS Safety Report 21998614 (Version 3)
Quarter: 2023Q1

REPORT INFORMATION
  Report Type: Spontaneous
  Country: US (occurrence: US)
  Receive Date: 20230216
  Receipt Date: 20230222
  Transmission Date: 20230417
  Serious: No
  Sender: FDA-Public Use
  Company Number: US-BRISTOL-MYERS SQUIBB COMPANY-2023-022691

PATIENT
  Age: 78 Year
  Sex: Female

DRUGS (1)
  1. LENALIDOMIDE [Suspect]
     Active Substance: LENALIDOMIDE
     Indication: Plasma cell myeloma
     Dosage: FREQUENCY CYCLE: TAKE 1 CAPSULE BY MOUTH ONCE DAILY ON DAYS 1-21 OF 28 DAYS CYCLE
     Route: 048
     Dates: start: 20230125

REACTIONS (8)
  - Constipation [Not Recovered/Not Resolved]
  - Melanocytic naevus [Not Recovered/Not Resolved]
  - Condition aggravated [Not Recovered/Not Resolved]
  - Back disorder [Unknown]
  - Joint swelling [Unknown]
  - Feeling hot [Unknown]
  - Erythema [Unknown]
  - Rash [Not Recovered/Not Resolved]
